FAERS Safety Report 21531373 (Version 1)
Quarter: 2022Q4

REPORT INFORMATION
  Report Type: Spontaneous
  Country: US (occurrence: None)
  Receive Date: 20221028
  Receipt Date: 20221028
  Transmission Date: 20230112
  Serious: Yes (Life-Threatening)
  Sender: FDA-Public Use
  Company Number: None

PATIENT
  Age: 66 Year
  Sex: Male
  Weight: 81 kg

DRUGS (1)
  1. FOSPHENYTOIN SODIUM [Suspect]
     Active Substance: FOSPHENYTOIN SODIUM
     Indication: Seizure
     Dosage: FREQUENCY : 4 TIMES A DAY;?
     Route: 042
     Dates: start: 20220428, end: 20220509

REACTIONS (6)
  - Aspiration [None]
  - Respiratory failure [None]
  - Anticonvulsant drug level increased [None]
  - Therapy interrupted [None]
  - Depressed level of consciousness [None]
  - Metabolic disorder [None]

NARRATIVE: CASE EVENT DATE: 20220509
